FAERS Safety Report 7934759-3 (Version None)
Quarter: 2011Q4

REPORT INFORMATION
  Report Type: 
  Country: None (occurrence: None)
  Receive Date: 20111118
  Receipt Date: 20111114
  Transmission Date: 20120403
  Serious: Yes (Death, Life-Threatening, Hospitalization)
  Sender: FDA-Public Use
  Company Number: 123268-1

PATIENT
  Age: 44 Year
  Sex: Male

DRUGS (1)
  1. DAUNORUBICIN HCL [Suspect]
     Indication: ACUTE MYELOID LEUKAEMIA
     Dosage: 117MG, 1 DAY
     Dates: start: 20110725, end: 20110824

REACTIONS (19)
  - PARESIS CRANIAL NERVE [None]
  - CARDIOVASCULAR DISORDER [None]
  - MENTAL DISORDER DUE TO A GENERAL MEDICAL CONDITION [None]
  - DELIRIUM [None]
  - FACIAL PARESIS [None]
  - HYPOAESTHESIA [None]
  - FAECAL INCONTINENCE [None]
  - BONE MARROW FAILURE [None]
  - HALLUCINATION [None]
  - CLOSTRIDIAL INFECTION [None]
  - DIARRHOEA [None]
  - FEBRILE NEUTROPENIA [None]
  - NEUTROPENIC SEPSIS [None]
  - PRURITUS [None]
  - ANAESTHESIA [None]
  - COAGULOPATHY [None]
  - HAEMODYNAMIC INSTABILITY [None]
  - RASH [None]
  - STOMATITIS [None]
